FAERS Safety Report 18740532 (Version 1)
Quarter: 2021Q1

REPORT INFORMATION
  Report Type: Spontaneous
  Country: US (occurrence: US)
  Receive Date: 20210113
  Receipt Date: 20210113
  Transmission Date: 20210419
  Serious: Yes (Life-Threatening, Hospitalization, Other)
  Sender: FDA-Public Use
  Company Number: None

PATIENT
  Age: 82 Year
  Sex: Male

DRUGS (1)
  1. OXALIPLATIN. [Suspect]
     Active Substance: OXALIPLATIN
     Indication: LUNG ADENOCARCINOMA STAGE I
     Dates: start: 20130516, end: 20201123

REACTIONS (5)
  - Dyspnoea [None]
  - Agonal rhythm [None]
  - Respiration abnormal [None]
  - Cardiac arrest [None]
  - Unresponsive to stimuli [None]

NARRATIVE: CASE EVENT DATE: 20201123
